FAERS Safety Report 5342123-9 (Version None)
Quarter: 2007Q2

REPORT INFORMATION
  Report Type: 
  Country: None (occurrence: None)
  Receive Date: 20070601
  Receipt Date: 20070517
  Transmission Date: 20071010
  Serious: Yes (Hospitalization)
  Sender: FDA-Public Use
  Company Number: US-MERCK-0705USA04970

PATIENT
  Age: 48 Year
  Sex: Male

DRUGS (2)
  1. LISINOPRIL [Suspect]
     Route: 048
     Dates: end: 20041201
  2. HYDROCHLOROTHIAZIDE [Suspect]
     Route: 048
     Dates: end: 20041201

REACTIONS (4)
  - ACUTE PRERENAL FAILURE [None]
  - HYPOTENSION [None]
  - ORTHOSTATIC HYPOTENSION [None]
  - PRESYNCOPE [None]
